FAERS Safety Report 11410085 (Version 1)
Quarter: 2015Q3

REPORT INFORMATION
  Report Type: Spontaneous
  Country: US (occurrence: None)
  Receive Date: 20150813
  Receipt Date: 20150813
  Transmission Date: 20151125
  Serious: Yes (Other)
  Sender: FDA-Public Use
  Company Number: M2014-012A

PATIENT
  Age: 32 Year
  Sex: Female
  Weight: 70.31 kg

DRUGS (6)
  1. POSITIVE SKIN TEST CONTROL - HISTAMINE [Suspect]
     Active Substance: HISTAMINE
     Indication: HYPERSENSITIVITY
     Dosage: DROP, SCRATCH
     Dates: start: 20140619
  2. VARIOUS, GREER LABS [Suspect]
     Active Substance: UNSPECIFIED INGREDIENT
     Indication: HYPERSENSITIVITY
     Dosage: UNKNOWN, ONCE, SCRATCH
     Dates: start: 20140619
  3. ADVAIR HFA [Concomitant]
     Active Substance: FLUTICASONE PROPIONATE\SALMETEROL XINAFOATE
  4. SINGULAIR [Concomitant]
     Active Substance: MONTELUKAST SODIUM
  5. BIRTH CONTROL [Concomitant]
     Active Substance: UNSPECIFIED INGREDIENT
  6. PROAIR HFA [Concomitant]
     Active Substance: ALBUTEROL SULFATE

REACTIONS (1)
  - Throat tightness [None]

NARRATIVE: CASE EVENT DATE: 20140619
